FAERS Safety Report 16526726 (Version 1)
Quarter: 2019Q3

REPORT INFORMATION
  Report Type: Spontaneous
  Country: VN (occurrence: VN)
  Receive Date: 20190704
  Receipt Date: 20190704
  Transmission Date: 20191004
  Serious: Yes (Other)
  Sender: FDA-Public Use
  Company Number: VN-ASTRAZENECA-2019SE95166

PATIENT
  Age: 65 Year
  Sex: Female

DRUGS (1)
  1. IRESSA [Suspect]
     Active Substance: GEFITINIB
     Indication: LUNG ADENOCARCINOMA
     Route: 048
     Dates: start: 201809

REACTIONS (2)
  - Dermatitis acneiform [Unknown]
  - Malignant neoplasm progression [Recovering/Resolving]
